FAERS Safety Report 7809432-2 (Version None)
Quarter: 2011Q4

REPORT INFORMATION
  Report Type: 
  Country: None (occurrence: None)
  Receive Date: 20111012
  Receipt Date: 20110926
  Transmission Date: 20120403
  Serious: Yes (Hospitalization, Other)
  Sender: FDA-Public Use
  Company Number: BR-ROCHE-787517

PATIENT
  Sex: Female
  Weight: 64 kg

DRUGS (5)
  1. MABTHERA [Suspect]
     Indication: PRODUCT USED FOR UNKNOWN INDICATION
     Route: 065
     Dates: start: 20100601, end: 20110201
  2. UNKNOWN MEDICATION [Concomitant]
  3. PREDNISONE [Concomitant]
  4. ARAVA [Concomitant]
     Route: 065
  5. NEOVLAR [Concomitant]

REACTIONS (2)
  - HYPERTENSION [None]
  - BUNION [None]
